FAERS Safety Report 6168656-3 (Version None)
Quarter: 2009Q2

REPORT INFORMATION
  Report Type: 
  Country: None (occurrence: None)
  Receive Date: 20090423
  Receipt Date: 20090413
  Transmission Date: 20091009
  Serious: Yes (Death)
  Sender: FDA-Public Use
  Company Number: CFNT-338

PATIENT
  Age: 22 Year
  Sex: Female

DRUGS (13)
  1. MEIACT MS (CEFDITOREN PIVOXIL) [Suspect]
     Dosage: 400MG, 300MG BY MOUTH
  2. MEIACT MS (CEFDITOREN PIVOXIL) [Suspect]
     Dosage: 400MG, 300MG BY MOUTH
  3. ACETAMINOPHEN [Suspect]
     Indication: PAIN
     Dosage: 400 MG AS NEEDED P.O.
     Route: 048
     Dates: start: 20090107
  4. DASEN (SERRAPEPTASE) [Suspect]
     Indication: INFLAMMATION
     Dosage: 30 MG, 20 MG P.O.
     Route: 048
     Dates: start: 20090107, end: 20090117
  5. DASEN (SERRAPEPTASE) [Suspect]
     Indication: INFLAMMATION
     Dosage: 30 MG, 20 MG P.O.
     Route: 048
     Dates: start: 20090117, end: 20090119
  6. CLARITHROMYCIN [Suspect]
     Indication: ANTIBIOTIC THERAPY
     Dosage: 400 MG P.O.
     Route: 048
     Dates: start: 20090117, end: 20090119
  7. MEQUITAZINE [Concomitant]
  8. BETAMETHASONE [Concomitant]
  9. IRSOGLADINE MALEATE [Concomitant]
  10. CEFCAPENE PIVOXIL HYDROCHLORIDE HYDRATE [Concomitant]
  11. MECOBALAMIN [Concomitant]
  12. SAIREITO (CHINESE HERBAL MEDICINE) [Concomitant]
  13. PREDNISOLONE [Concomitant]

REACTIONS (2)
  - NO THERAPEUTIC RESPONSE [None]
  - TOXIC EPIDERMAL NECROLYSIS [None]
